FAERS Safety Report 6917875-4 (Version None)
Quarter: 2010Q3

REPORT INFORMATION
  Report Type: 
  Country: None (occurrence: None)
  Receive Date: 20100810
  Receipt Date: 20090616
  Transmission Date: 20110219
  Serious: No
  Sender: FDA-Public Use
  Company Number: US-PFIZER INC-2009206629

PATIENT

DRUGS (6)
  1. TOVIAZ [Suspect]
  2. METOPROLOL [Concomitant]
     Dosage: UNK
  3. DOXAZOSIN [Concomitant]
     Dosage: UNK
  4. CLOPIDOGREL [Concomitant]
     Dosage: UNK
  5. ALLOPURINOL [Concomitant]
     Dosage: UNK
  6. LORAZEPAM [Concomitant]
     Dosage: UNK

REACTIONS (1)
  - DYSURIA [None]
